FAERS Safety Report 6053237-2 (Version None)
Quarter: 2009Q1

REPORT INFORMATION
  Report Type: 
  Country: None (occurrence: None)
  Receive Date: 20090123
  Receipt Date: 20090107
  Transmission Date: 20090719
  Serious: Yes (Hospitalization)
  Sender: FDA-Public Use
  Company Number: 000146

PATIENT
  Sex: Male
  Weight: 83.4 kg

DRUGS (8)
  1. ROTIGOTINE [Suspect]
     Indication: PARKINSON'S DISEASE
     Dosage: 2 MG QD TRANSDERMAL
     Route: 062
     Dates: start: 20070701, end: 20080601
  2. COZAAR [Concomitant]
  3. CELEBREX [Concomitant]
  4. ASPIRIN [Concomitant]
  5. ATENOLOL [Concomitant]
  6. FLOMAX [Concomitant]
  7. ZOCOR [Concomitant]
  8. SINEMET [Concomitant]

REACTIONS (2)
  - CORONARY ARTERY BYPASS [None]
  - TREMOR [None]
